FAERS Safety Report 24019309 (Version 3)
Quarter: 2024Q3

REPORT INFORMATION
  Report Type: Spontaneous
  Country: PK (occurrence: PK)
  Receive Date: 20240627
  Receipt Date: 20240923
  Transmission Date: 20241017
  Serious: Yes (Other)
  Sender: PFIZER
  Company Number: PK-PFIZER INC-PV202200104567

PATIENT
  Age: 51 Year
  Sex: Female

DRUGS (13)
  1. IBRANCE [Suspect]
     Active Substance: PALBOCICLIB
     Indication: Breast cancer metastatic
     Dosage: 1 DAILY 3 WEEKS ON, 1 WEEK OFF
     Route: 048
     Dates: start: 202204
  2. IBRANCE [Suspect]
     Active Substance: PALBOCICLIB
     Dosage: 125 MG
     Route: 048
     Dates: start: 20220524, end: 2022
  3. IBRANCE [Suspect]
     Active Substance: PALBOCICLIB
     Dosage: 21 DAYS
     Route: 048
     Dates: start: 2022, end: 2022
  4. IBRANCE [Suspect]
     Active Substance: PALBOCICLIB
     Dosage: FOR 21 DAYS, ONCE DAILY, 3 WEEKS ON, 1 WEEK OFF
     Route: 048
     Dates: start: 20221125
  5. IBRANCE [Suspect]
     Active Substance: PALBOCICLIB
     Dosage: 125 MG, 21 DAYS ON 1 WEEK OFF
     Route: 048
     Dates: start: 202205
  6. IBRANCE [Suspect]
     Active Substance: PALBOCICLIB
     Dosage: ONCE DAILY 3 WEEKS ON 1 WEEK REST
     Route: 048
     Dates: start: 20240104
  7. FEMARA [Concomitant]
     Active Substance: LETROZOLE
     Dosage: 2.5 MG, 1X/DAY
  8. FILATIL [Concomitant]
     Dosage: 300 MG (300MG S/C X STAT)
     Route: 058
  9. FILATIL [Concomitant]
     Dosage: O.D
     Route: 058
  10. LETROZOLE [Concomitant]
     Active Substance: LETROZOLE
     Dosage: 1 DF, DAILY
     Route: 048
     Dates: start: 202204
  11. METHYLCOBALAMIN [Concomitant]
     Active Substance: METHYLCOBALAMIN
     Dosage: UNK
  12. ZOLEDRONIC ACID [Concomitant]
     Active Substance: ZOLEDRONIC ACID
     Dosage: 4 MG IV X 3 MONTHLY
     Route: 042
  13. AMGOFIL [Concomitant]
     Dosage: 300 MG
     Route: 058

REACTIONS (4)
  - Ascites [Unknown]
  - Haemoglobin decreased [Unknown]
  - Neoplasm progression [Unknown]
  - Product prescribing error [Unknown]
